FAERS Safety Report 23695117 (Version 1)
Quarter: 2024Q2

REPORT INFORMATION
  Report Type: Spontaneous
  Country: GB (occurrence: GB)
  Receive Date: 20240402
  Receipt Date: 20240402
  Transmission Date: 20240716
  Serious: Yes (Other)
  Sender: FDA-Public Use
  Company Number: None

PATIENT
  Age: 71 Year
  Sex: Female
  Weight: 86 kg

DRUGS (13)
  1. ANASTROZOLE [Concomitant]
     Active Substance: ANASTROZOLE
     Indication: Disease recurrence
     Dosage: UNK (1TAB QD)
     Dates: start: 20230711
  2. ASPIRIN [Concomitant]
     Active Substance: ASPIRIN
     Indication: Hypercoagulation
     Dosage: UNK (ONE TABLET DAILY TO HELP THIN THE BLOOD)
     Dates: start: 20230711
  3. CHOLECALCIFEROL [Concomitant]
     Active Substance: CHOLECALCIFEROL
     Indication: Product used for unknown indication
     Dosage: UNK (1 TAB QD)
     Dates: start: 20230711
  4. FLUTICASONE PROPIONATE\FORMOTEROL FUMARATE [Concomitant]
     Active Substance: FLUTICASONE PROPIONATE\FORMOTEROL FUMARATE
     Indication: Product used for unknown indication
     Dosage: UNK (2 TAB BID)
     Route: 055
     Dates: start: 20230711
  5. FUROSEMIDE [Concomitant]
     Active Substance: FUROSEMIDE
     Indication: Fluid retention
     Dosage: 1 TAB QD (EACH MORNING TO REDUCE FLUID)
     Dates: start: 20230711
  6. NITROGLYCERIN [Concomitant]
     Active Substance: NITROGLYCERIN
     Indication: Product used for unknown indication
     Dosage: UNK (SPRAY ONE OR TWO DOSES UNDER TONGUE AND THEN CL)
     Route: 060
     Dates: start: 20230711
  7. LANSOPRAZOLE [Concomitant]
     Active Substance: LANSOPRAZOLE
     Indication: Gastrooesophageal reflux disease
     Dosage: UNK (I TAB QD) (TO REDUCE STOMACH ACID)
     Dates: start: 20230711
  8. METFORMIN [Concomitant]
     Active Substance: METFORMIN HYDROCHLORIDE
     Indication: Product used for unknown indication
     Dosage: UNK (1 TAB QD)
     Dates: start: 20230711
  9. OZEMPIC [Concomitant]
     Active Substance: SEMAGLUTIDE
     Dosage: UNK USE AS DIRECTED
     Dates: start: 20230711
  10. ROSUVASTATIN [Concomitant]
     Active Substance: ROSUVASTATIN
     Indication: Product used for unknown indication
     Dosage: UNK (1 TAB QD)
     Dates: start: 20230711
  11. ALBUTEROL SULFATE [Concomitant]
     Active Substance: ALBUTEROL SULFATE
     Indication: Wheezing
     Dosage: UNK (INHALE TWO DOSES, AS NECESSARY)(2 TAB)
     Route: 055
     Dates: start: 20230711
  12. SITAGLIPTIN [Concomitant]
     Active Substance: SITAGLIPTIN
     Indication: Product used for unknown indication
     Dosage: UNK (1 TAB, QD)
     Dates: start: 20240315
  13. RYBELSUS [Suspect]
     Active Substance: SEMAGLUTIDE
     Indication: Product used for unknown indication
     Dosage: UNK
     Dates: start: 20240223, end: 20240315

REACTIONS (3)
  - Headache [Recovering/Resolving]
  - Nausea [Recovering/Resolving]
  - Dizziness [Recovering/Resolving]
